FAERS Safety Report 18207757 (Version 3)
Quarter: 2021Q1

REPORT INFORMATION
  Report Type: Spontaneous
  Country: US (occurrence: US)
  Receive Date: 20200828
  Receipt Date: 20210216
  Transmission Date: 20210419
  Serious: Yes (Hospitalization, Other)
  Sender: FDA-Public Use
  Company Number: US-PFIZER INC-2020334098

PATIENT
  Age: 79 Year
  Sex: Female

DRUGS (1)
  1. IBRANCE [Suspect]
     Active Substance: PALBOCICLIB
     Indication: BREAST CANCER FEMALE
     Dosage: 100 MG, CYCLIC (100 MG QD (EVERYDAY) X 21 DAYS)
     Dates: start: 20190719

REACTIONS (4)
  - Thrombosis [Not Recovered/Not Resolved]
  - Onychoclasis [Unknown]
  - Peripheral swelling [Unknown]
  - Rash [Unknown]
